FAERS Safety Report 19321976 (Version 1)
Quarter: 2021Q2

REPORT INFORMATION
  Report Type: Spontaneous
  Country: US (occurrence: US)
  Receive Date: 20210528
  Receipt Date: 20210528
  Transmission Date: 20210717
  Serious: No
  Sender: FDA-Public Use
  Company Number: US-SA-2021SA176535

PATIENT
  Sex: Male

DRUGS (3)
  1. DUPIXENT [Suspect]
     Active Substance: DUPILUMAB
     Indication: DERMATITIS ATOPIC
     Route: 058
  2. IBUPROFEN. [Concomitant]
     Active Substance: IBUPROFEN
  3. MAPAP [Concomitant]
     Active Substance: ACETAMINOPHEN
     Indication: ARTHRITIS

REACTIONS (4)
  - Dry eye [Not Recovered/Not Resolved]
  - Dermatitis atopic [Recovered/Resolved]
  - Skin exfoliation [Not Recovered/Not Resolved]
  - Eye pruritus [Not Recovered/Not Resolved]
